FAERS Safety Report 8881565 (Version 2)
Quarter: 2012Q4

REPORT INFORMATION
  Report Type: 
  Country: US (occurrence: US)
  Receive Date: 20121102
  Receipt Date: 20121128
  Transmission Date: 20130627
  Serious: Yes (Other)
  Sender: FDA-Public Use
  Company Number: US-BAYER-2012-092135

PATIENT
  Age: 93 Year
  Sex: Female
  Weight: 63.5 kg

DRUGS (15)
  1. RIVAROXABAN [Suspect]
     Indication: ATRIAL FIBRILLATION
     Dosage: 15 mg, QD
     Route: 048
     Dates: start: 20111123
  2. RIVAROXABAN [Interacting]
     Indication: CEREBROVASCULAR ACCIDENT PROPHYLAXIS
     Dosage: 10 mg, QD
     Route: 048
     Dates: start: 20111201
  3. RIVAROXABAN [Interacting]
     Indication: ATRIAL FIBRILLATION
     Dosage: 7.5 mg, QD
     Route: 048
     Dates: start: 20120927, end: 20121015
  4. ACETYLSALICYLIC ACID({=100 MG) [Interacting]
     Dosage: 81 mg, QD
     Dates: end: 20121012
  5. LASIX [Concomitant]
     Indication: BLOOD PRESSURE HIGH
     Dosage: 40 mg, QD
     Route: 048
  6. LASIX [Concomitant]
     Indication: BLOOD PRESSURE HIGH
     Dosage: 40 mg, QD
     Route: 048
     Dates: start: 20090401
  7. METOPROLOL [Concomitant]
     Indication: BLOOD PRESSURE HIGH
     Dosage: 25 mg, QD
     Route: 048
  8. METOPROLOL [Concomitant]
     Indication: BLOOD PRESSURE HIGH
     Dosage: 25 mg, BID
     Route: 048
     Dates: start: 20090401
  9. FEMARA [Concomitant]
     Indication: CANCER
     Dosage: 2.5 mg, QD
  10. FEMARA [Concomitant]
     Indication: CANCER
     Dosage: 2.5 mg, QD
     Dates: start: 20090401
  11. POTASSIUM CHLORIDE [Concomitant]
     Indication: MINERAL SUPPLEMENTATION
     Dosage: 10 mg, QD
     Route: 048
  12. ZANTAC [Concomitant]
  13. ZANTAC [Concomitant]
     Dates: start: 20090401
  14. VITAMIN D [Concomitant]
  15. TYLENOL [PARACETAMOL] [Concomitant]

REACTIONS (3)
  - Epistaxis [Not Recovered/Not Resolved]
  - Urinary tract infection [Recovered/Resolved]
  - Blood urine present [Recovered/Resolved]
